FAERS Safety Report 5097656-X (Version None)
Quarter: 2006Q3

REPORT INFORMATION
  Report Type: 
  Country: None (occurrence: None)
  Receive Date: 20060831
  Receipt Date: 20060825
  Transmission Date: 20061208
  Serious: Yes (Hospitalization)
  Sender: FDA-Public Use
  Company Number: THYM-11038

PATIENT
  Sex: Female

DRUGS (1)
  1. THYMOGLOBULIN [Suspect]
     Indication: MULTIPLE MYELOMA
     Dosage: 2 MG/KG ONCE IV
     Route: 042
     Dates: start: 20060822, end: 20060822

REACTIONS (2)
  - HYPOTENSION [None]
  - PYREXIA [None]
